FAERS Safety Report 12223933 (Version 1)
Quarter: 2016Q1

REPORT INFORMATION
  Report Type: Report from Study
  Country: CA (occurrence: CA)
  Receive Date: 20160330
  Receipt Date: 20160330
  Transmission Date: 20160526
  Serious: Yes (Other)
  Sender: FDA-Public Use
  Company Number: CA-GILEAD-2016-0201450

PATIENT
  Age: 59 Year
  Sex: Male

DRUGS (10)
  1. LEDIPASVIR/SOFOSBUVIR [Suspect]
     Active Substance: LEDIPASVIR\SOFOSBUVIR
     Indication: CHRONIC HEPATITIS C
     Dosage: 1 DF, UNK
     Route: 048
     Dates: start: 20160207
  2. ATROVENT [Concomitant]
     Active Substance: IPRATROPIUM BROMIDE
  3. IBUPROFEN. [Concomitant]
     Active Substance: IBUPROFEN
     Dosage: UNK, PRN
  4. VENTOLIN [Concomitant]
     Active Substance: ALBUTEROL SULFATE
  5. CIALIS [Concomitant]
     Active Substance: TADALAFIL
  6. PANTOPRAZOLE [Concomitant]
     Active Substance: PANTOPRAZOLE SODIUM
  7. NAPROXEN. [Concomitant]
     Active Substance: NAPROXEN
     Dosage: UNK, PRN
  8. OMNARIS [Concomitant]
     Active Substance: CICLESONIDE
  9. TRAZODONE [Concomitant]
     Active Substance: TRAZODONE HYDROCHLORIDE
  10. CIPRALEX [Concomitant]
     Active Substance: ESCITALOPRAM OXALATE

REACTIONS (1)
  - Chronic obstructive pulmonary disease [Recovered/Resolved]

NARRATIVE: CASE EVENT DATE: 201602
